FAERS Safety Report 25983473 (Version 1)
Quarter: 2025Q4

REPORT INFORMATION
  Report Type: Spontaneous
  Country: CN (occurrence: CN)
  Receive Date: 20251031
  Receipt Date: 20251031
  Transmission Date: 20260118
  Serious: Yes (Other)
  Sender: RANBAXY
  Company Number: CN-SUN PHARMACEUTICAL INDUSTRIES LTD-2025R1-533989

PATIENT
  Age: 55 Year
  Sex: Male

DRUGS (3)
  1. CAPECITABINE [Suspect]
     Active Substance: CAPECITABINE
     Indication: Neoadjuvant therapy
     Dosage: 1000 MILLIGRAM/SQ. METER, BID
     Route: 065
  2. OXALIPLATIN [Suspect]
     Active Substance: OXALIPLATIN
     Indication: Neoadjuvant therapy
     Dosage: 130 MILLIGRAM/SQ. METER
     Route: 042
  3. TISLELIZUMAB [Suspect]
     Active Substance: TISLELIZUMAB
     Indication: Neoadjuvant therapy
     Dosage: 200 MILLIGRAM
     Route: 042

REACTIONS (2)
  - Eyelid ptosis [Recovered/Resolved]
  - Transaminases increased [Unknown]
